FAERS Safety Report 13651337 (Version 16)
Quarter: 2020Q2

REPORT INFORMATION
  Report Type: Spontaneous
  Country: US (occurrence: US)
  Receive Date: 20170614
  Receipt Date: 20200527
  Transmission Date: 20200713
  Serious: Yes (Hospitalization, Other)
  Sender: FDA-Public Use
  Company Number: US-PFIZER INC-2017259795

PATIENT
  Age: 49 Year
  Sex: Male
  Weight: 122.45 kg

DRUGS (9)
  1. DILANTIN [Suspect]
     Active Substance: PHENYTOIN
     Indication: SEIZURE
     Dosage: 500 MG, 1X/DAY (5-100 TABS AT BEDTIME)
     Route: 048
     Dates: start: 1982
  2. DILANTIN [Suspect]
     Active Substance: PHENYTOIN
     Indication: SEIZURE
     Dosage: 500 MG, 1X/DAY (100MG, 5 BY MOUTH AT BEDTIME)
     Route: 048
     Dates: start: 1982
  3. DILANTIN [Suspect]
     Active Substance: PHENYTOIN
     Dosage: 600 MG, 1X/DAY
     Route: 048
  4. KEPPRA [Concomitant]
     Active Substance: LEVETIRACETAM
     Indication: SEIZURE
     Dosage: 750 MG, 2X/DAY
  5. DILANTIN [Suspect]
     Active Substance: PHENYTOIN
     Dosage: 600 MG (CURRENTLY TAKES 6 CAPSULES)
  6. DILANTIN [Suspect]
     Active Substance: PHENYTOIN
     Indication: EPILEPSY
     Dosage: 500 MG, DAILY (QUANTITY FOR 90 DAYS: 450)
  7. DILANTIN [Suspect]
     Active Substance: PHENYTOIN
     Indication: EPILEPSY
     Dosage: UNK
     Dates: start: 198211
  8. PHENOBARBITAL. [Concomitant]
     Active Substance: PHENOBARBITAL
     Indication: SEIZURE
     Dosage: 48.6 MG, 1X/DAY (16.2MG, 3 AT BEDTIME)
     Dates: start: 197402
  9. KEPPRA [Concomitant]
     Active Substance: LEVETIRACETAM
     Dosage: 2000 MG, 2X/DAY (1,000MG, 2 TWICE DAILY)
     Dates: start: 2016

REACTIONS (24)
  - Head injury [Unknown]
  - Cerebral haematoma [Unknown]
  - Colon cancer [Not Recovered/Not Resolved]
  - Seizure [Recovered/Resolved with Sequelae]
  - Seizure [Recovered/Resolved]
  - Partial seizures [Unknown]
  - Weight decreased [Recovered/Resolved]
  - Loss of personal independence in daily activities [Unknown]
  - Back injury [Unknown]
  - Generalised tonic-clonic seizure [Unknown]
  - Upper limb fracture [Not Recovered/Not Resolved]
  - Foot fracture [Unknown]
  - Cardiac flutter [Unknown]
  - Cerebral haemorrhage [Recovered/Resolved with Sequelae]
  - Hypoacusis [Unknown]
  - Memory impairment [Unknown]
  - Stress [Unknown]
  - Condition aggravated [Recovered/Resolved with Sequelae]
  - Intentional product misuse [Unknown]
  - Bone density abnormal [Unknown]
  - Palpitations [Unknown]
  - Joint range of motion decreased [Unknown]
  - Fall [Unknown]
  - Cardiac disorder [Unknown]

NARRATIVE: CASE EVENT DATE: 20160601
